FAERS Safety Report 4537090-1 (Version None)
Quarter: 2004Q4

REPORT INFORMATION
  Report Type: 
  Country: None (occurrence: None)
  Receive Date: 20041223
  Receipt Date: 20041204
  Transmission Date: 20050328
  Serious: Yes (Death)
  Sender: FDA-Public Use
  Company Number: JP-GLAXOSMITHKLINE-B0359071A

PATIENT
  Age: 58 Year
  Sex: Male
  Weight: 60 kg

DRUGS (6)
  1. FLUTIDE DISKUS [Suspect]
     Indication: ASTHMA
     Route: 055
     Dates: start: 20040809, end: 20041011
  2. SAXIZON [Suspect]
     Indication: ASTHMA
     Dosage: 90MG PER DAY
     Route: 042
     Dates: start: 20041011, end: 20041011
  3. SOLU-MEDROL [Suspect]
     Indication: ASTHMA
     Route: 042
     Dates: start: 20040911
  4. PREDONINE [Suspect]
     Indication: ASTHMA
     Route: 048
     Dates: start: 20040930, end: 20041015
  5. MAGNESIUM OXIDE [Concomitant]
     Indication: CONSTIPATION
     Dosage: .99G PER DAY
     Route: 048
     Dates: start: 20041016, end: 20041109
  6. MS ONSHIPPU [Concomitant]
     Indication: BACK PAIN
     Route: 062
     Dates: start: 20041021, end: 20041021

REACTIONS (13)
  - CHEST X-RAY ABNORMAL [None]
  - DRUG INEFFECTIVE [None]
  - DYSPNOEA [None]
  - GASTROENTERITIS STAPHYLOCOCCAL [None]
  - LUNG INFECTION PSEUDOMONAL [None]
  - LUNG INFILTRATION [None]
  - MULTI-ORGAN FAILURE [None]
  - OXYGEN SATURATION DECREASED [None]
  - PNEUMONIA [None]
  - PYREXIA [None]
  - RESPIRATORY DISORDER [None]
  - RESPIRATORY FAILURE [None]
  - UPPER GASTROINTESTINAL HAEMORRHAGE [None]
